FAERS Safety Report 9264429 (Version 1)
Quarter: 2013Q2

REPORT INFORMATION
  Report Type: Report from Study
  Country: HU (occurrence: HU)
  Receive Date: 20130430
  Receipt Date: 20130430
  Transmission Date: 20140414
  Serious: Yes (Other)
  Sender: FDA-Public Use
  Company Number: HU-ROCHE-1200588

PATIENT
  Sex: Male

DRUGS (3)
  1. XELODA [Suspect]
     Indication: GASTRIC CANCER
     Route: 048
     Dates: start: 20130114, end: 20130305
  2. XELODA [Suspect]
     Route: 048
     Dates: end: 20130327
  3. CISPLATIN [Concomitant]

REACTIONS (9)
  - Disease progression [Unknown]
  - Anaemia [Unknown]
  - Nausea [Unknown]
  - Asthenia [Not Recovered/Not Resolved]
  - Vomiting [Unknown]
  - Bradyphrenia [Unknown]
  - Dizziness [Unknown]
  - Decreased appetite [Unknown]
  - Renal impairment [Not Recovered/Not Resolved]
